FAERS Safety Report 10511094 (Version 1)
Quarter: 2014Q4

REPORT INFORMATION
  Report Type: Spontaneous
  Country: US (occurrence: None)
  Receive Date: 20141002
  Receipt Date: 20141002
  Transmission Date: 20150528
  Serious: Yes (Hospitalization)
  Sender: FDA-Public Use
  Company Number: PHEH2013US019633

PATIENT
  Age: 62 Year
  Sex: Female
  Weight: 102 kg

DRUGS (13)
  1. PREDNISONE (PREDNISONE) [Concomitant]
     Active Substance: PREDNISONE
  2. QVAR (BECLOMETASONE DIPROPIONATE) [Concomitant]
  3. DOCUSATE [Concomitant]
     Active Substance: DOCUSATE
  4. MIRAPEX [Concomitant]
     Active Substance: PRAMIPEXOLE DIHYDROCHLORIDE
  5. TRAZODONE [Concomitant]
     Active Substance: TRAZODONE HYDROCHLORIDE
  6. ZORTRESS [Suspect]
     Active Substance: EVEROLIMUS
     Indication: LIVER TRANSPLANT
     Route: 048
     Dates: start: 20130709, end: 20130916
  7. ASPIRIN. [Concomitant]
     Active Substance: ASPIRIN
  8. METFORMIN [Concomitant]
     Active Substance: METFORMIN HYDROCHLORIDE
  9. SEPTRA (SULFAMETHOXAZOLE, TRIMETHOPRIM) [Concomitant]
  10. BUPROPION [Concomitant]
     Active Substance: BUPROPION
  11. NORTRIPTYLINE [Concomitant]
     Active Substance: NORTRIPTYLINE
  12. TACROLIMUS. [Concomitant]
     Active Substance: TACROLIMUS
  13. HYTRIN (TERAZOSIN HYDROCHLORIDE) [Concomitant]

REACTIONS (5)
  - Pain [None]
  - Pulmonary embolism [None]
  - Deep vein thrombosis [None]
  - Pericardial effusion [None]
  - Dyspnoea [None]

NARRATIVE: CASE EVENT DATE: 20130912
